FAERS Safety Report 10504502 (Version 1)
Quarter: 2014Q3

REPORT INFORMATION
  Report Type: Spontaneous
  Country: US (occurrence: None)
  Receive Date: 20140912
  Receipt Date: 20140912
  Transmission Date: 20150326
  Serious: Yes (Other)
  Sender: FDA-Public Use
  Company Number: 1000052756

PATIENT
  Sex: Female

DRUGS (4)
  1. ANTIBIOTIC (NOS) [Concomitant]
     Active Substance: UNSPECIFIED INGREDIENT
  2. TOPROL (METOPROLOL SUCCINATE) [Concomitant]
  3. ASPIRIN (ACETYLSALICYLIC ACID) [Concomitant]
     Active Substance: ASPIRIN
  4. DALIRESP [Suspect]
     Active Substance: ROFLUMILAST
     Indication: CHRONIC OBSTRUCTIVE PULMONARY DISEASE
     Dosage: 1 IN 1 D
     Route: 048
     Dates: start: 20140107, end: 20140213

REACTIONS (8)
  - Weight decreased [None]
  - Headache [None]
  - Decreased appetite [None]
  - Vomiting [None]
  - Hot flush [None]
  - Dizziness [None]
  - Diarrhoea [None]
  - Nausea [None]

NARRATIVE: CASE EVENT DATE: 201401
